APPROVED DRUG PRODUCT: ACETAMINOPHEN, ASPIRIN AND CAFFEINE
Active Ingredient: ACETAMINOPHEN; ASPIRIN; CAFFEINE
Strength: 250MG;250MG;65MG
Dosage Form/Route: TABLET;ORAL
Application: A211695 | Product #001
Applicant: AUROBINDO PHARMA LTD
Approved: Feb 2, 2022 | RLD: No | RS: No | Type: OTC